FAERS Safety Report 7636246-9 (Version None)
Quarter: 2011Q3

REPORT INFORMATION
  Report Type: 
  Country: None (occurrence: None)
  Receive Date: 20110726
  Receipt Date: 20110715
  Transmission Date: 20111222
  Serious: Yes (Other)
  Sender: FDA-Public Use
  Company Number: US-BAXTER-2011BH018806

PATIENT
  Age: 60 Year
  Sex: Female

DRUGS (9)
  1. NORVASC [Concomitant]
     Route: 048
     Dates: start: 20101123
  2. POTASSIUM CHLORIDE [Concomitant]
     Indication: HYPOKALAEMIA
     Route: 048
     Dates: start: 20101209
  3. DIANEAL [Suspect]
     Indication: PERITONEAL DIALYSIS
     Route: 033
  4. DIANEAL [Suspect]
     Indication: PERITONEAL DIALYSIS
     Route: 033
  5. METOPROLOL TARTRATE [Concomitant]
     Indication: HYPERTENSION
     Route: 048
     Dates: start: 20110428
  6. DIATX [Concomitant]
     Indication: VITAMIN SUPPLEMENTATION
     Route: 048
     Dates: start: 20081013
  7. PANTOPRAZOLE [Concomitant]
     Indication: GASTROOESOPHAGEAL REFLUX DISEASE
     Route: 048
     Dates: start: 20081013
  8. DOXAZOSIN MESYLATE [Concomitant]
     Indication: HYPERTENSION
     Route: 048
     Dates: start: 20091109
  9. EPOGEN [Concomitant]
     Indication: ANAEMIA
     Route: 058
     Dates: start: 20110614

REACTIONS (3)
  - APPENDICITIS [None]
  - DISCOMFORT [None]
  - ADHESION [None]
